FAERS Safety Report 10549179 (Version 3)
Quarter: 2015Q1

REPORT INFORMATION
  Report Type: Report from Study
  Country: US (occurrence: US)
  Receive Date: 20141028
  Receipt Date: 20150115
  Transmission Date: 20150720
  Serious: Yes (Life-Threatening, Hospitalization)
  Sender: FDA-Public Use
  Company Number: US-GLENMARK GENERICS INC.-2014GMK011707

PATIENT
  Age: 72 Year
  Sex: Male
  Weight: 76.64 kg

DRUGS (16)
  1. SOLARAZE [Suspect]
     Active Substance: DICLOFENAC SODIUM
     Dosage: UNK, BID
     Route: 061
     Dates: start: 20140723, end: 20140918
  2. HYTRIN [Concomitant]
     Active Substance: TERAZOSIN HYDROCHLORIDE
     Dosage: 5 MG, QD
     Route: 048
     Dates: start: 201402
  3. FISH OIL [Concomitant]
     Active Substance: FISH OIL
     Dosage: 1 DF, QD
     Route: 048
     Dates: start: 201210
  4. ALEVE [Concomitant]
     Active Substance: NAPROXEN SODIUM
     Dosage: 1 DF, PRN
     Route: 048
     Dates: start: 2011
  5. PLACEBO [Suspect]
     Active Substance: UNSPECIFIED INGREDIENT
     Dosage: UNK, BID
     Route: 061
     Dates: start: 20140723, end: 20140918
  6. PROTONIX [Concomitant]
     Active Substance: PANTOPRAZOLE SODIUM
     Dosage: 40 MG, QD
     Route: 048
     Dates: start: 2012
  7. COQ10                              /00517201/ [Concomitant]
     Dosage: 1 DF, QD
     Route: 048
     Dates: start: 20140921
  8. LIPITOR [Concomitant]
     Active Substance: ATORVASTATIN CALCIUM
     Dosage: 20 MG, QD
     Route: 048
     Dates: start: 200601
  9. HYDROCODONE [Concomitant]
     Active Substance: HYDROCODONE
     Dosage: 350 MG, TID
     Route: 048
     Dates: start: 20140805, end: 20140806
  10. MOXIFLOXACIN [Concomitant]
     Active Substance: MOXIFLOXACIN
     Dosage: 400 MG, QD
     Route: 048
     Dates: start: 20110911
  11. CALCIUM WITH VITAMIN D             /00944201/ [Concomitant]
     Active Substance: CALCIUM\VITAMIN D
     Dosage: 1 DF, QD
     Route: 048
     Dates: start: 201102
  12. MULTIVITAMIN                       /07504101/ [Concomitant]
     Active Substance: VITAMINS
     Dosage: HALF TABLET, QD
     Route: 048
     Dates: start: 200010
  13. BLINDED DICLOFENAC SODIUM [Suspect]
     Active Substance: DICLOFENAC SODIUM
     Dosage: UNK, BID
     Route: 061
     Dates: start: 20140723, end: 20140918
  14. ASPIRIN. [Concomitant]
     Active Substance: ASPIRIN
     Dosage: 81 MG, QD
     Route: 048
     Dates: start: 200301
  15. COREG [Concomitant]
     Active Substance: CARVEDILOL
     Dosage: 25 MG, QD
     Route: 048
     Dates: start: 2006
  16. RAMIPRIL. [Concomitant]
     Active Substance: RAMIPRIL
     Dosage: 10 MG, QD
     Route: 048
     Dates: start: 200601

REACTIONS (1)
  - Myocardial infarction [Recovering/Resolving]

NARRATIVE: CASE EVENT DATE: 20141001
